FAERS Safety Report 13645645 (Version 2)
Quarter: 2017Q2

REPORT INFORMATION
  Report Type: Spontaneous
  Country: DE (occurrence: DE)
  Receive Date: 20170613
  Receipt Date: 20170630
  Transmission Date: 20170830
  Serious: Yes (Other)
  Sender: FDA-Public Use
  Company Number: DE-TORRENT-00006596

PATIENT
  Age: 66 Year
  Sex: Female

DRUGS (12)
  1. FOLSAEURE [Concomitant]
     Active Substance: FOLIC ACID
  2. LAMOTRIGINE. [Suspect]
     Active Substance: LAMOTRIGINE
  3. L-THYROXIN [Concomitant]
     Active Substance: LEVOTHYROXINE SODIUM
  4. CLOZAPINE. [Suspect]
     Active Substance: CLOZAPINE
  5. BISOPROLOL [Concomitant]
     Active Substance: BISOPROLOL
  6. ACETYLSALICYLIC ACID [Concomitant]
     Active Substance: ASPIRIN
  7. VITAMIN B12 [Concomitant]
     Active Substance: CYANOCOBALAMIN
  8. SIMVASTATIN. [Concomitant]
     Active Substance: SIMVASTATIN
  9. MOVICOL [Concomitant]
     Active Substance: POLYETHYLENE GLYCOL 3350\POTASSIUM CHLORIDE\SODIUM BICARBONATE\SODIUM CHLORIDE
  10. QUILONUM RETARD [Suspect]
     Active Substance: LITHIUM CARBONATE
  11. VENLAFAXINE [Suspect]
     Active Substance: VENLAFAXINE HYDROCHLORIDE
  12. ARIPIPRAZOLE. [Suspect]
     Active Substance: ARIPIPRAZOLE

REACTIONS (7)
  - Electroencephalogram abnormal [Recovered/Resolved]
  - Anuria [Unknown]
  - Gait disturbance [Recovered/Resolved]
  - Altered state of consciousness [Recovered/Resolved]
  - Persistent depressive disorder [Recovered/Resolved]
  - Urinary incontinence [Recovered/Resolved]
  - Cognitive disorder [Recovered/Resolved]

NARRATIVE: CASE EVENT DATE: 20160606
